FAERS Safety Report 9131043 (Version 1)
Quarter: 2013Q1

REPORT INFORMATION
  Report Type: Report from Study
  Country: US (occurrence: US)
  Receive Date: 20130301
  Receipt Date: 20130301
  Transmission Date: 20140127
  Serious: Yes (Hospitalization)
  Sender: FDA-Public Use
  Company Number: US-JNJFOC-20130213924

PATIENT
  Age: 56 Year
  Sex: Male
  Weight: 117.8 kg

DRUGS (3)
  1. DOXORUBICIN HYDROCHLORIDE (DOXIL) [Suspect]
     Indication: MYCOSIS FUNGOIDES
     Route: 042
     Dates: start: 20081024
  2. DOXORUBICIN HYDROCHLORIDE (DOXIL) [Suspect]
     Indication: MYCOSIS FUNGOIDES
     Route: 042
     Dates: start: 20081218
  3. DOXORUBICIN HYDROCHLORIDE (DOXIL) [Suspect]
     Indication: MYCOSIS FUNGOIDES
     Route: 042
     Dates: start: 20090106, end: 20090206

REACTIONS (1)
  - Cellulitis [Recovering/Resolving]
